FAERS Safety Report 25992277 (Version 1)
Quarter: 2025Q4

REPORT INFORMATION
  Report Type: Spontaneous
  Country: US (occurrence: None)
  Receive Date: 20251103
  Receipt Date: 20251103
  Transmission Date: 20260118
  Serious: Yes (Other)
  Sender: FDA-CTU
  Company Number: None

PATIENT
  Age: 74 Year
  Sex: Male
  Weight: 82.8 kg

DRUGS (1)
  1. ABIRATERONE [Suspect]
     Active Substance: ABIRATERONE

REACTIONS (2)
  - Testicular neoplasm [None]
  - Testicular pain [None]

NARRATIVE: CASE EVENT DATE: 20251103
